FAERS Safety Report 6303294-0 (Version None)
Quarter: 2009Q3

REPORT INFORMATION
  Report Type: 
  Country: None (occurrence: None)
  Receive Date: 20090810
  Receipt Date: 20090602
  Transmission Date: 20100115
  Serious: No
  Sender: FDA-Public Use
  Company Number: A0788022A

PATIENT
  Sex: Male

DRUGS (1)
  1. SEROXAT [Suspect]
     Dosage: 10MG PER DAY
     Dates: start: 20090201

REACTIONS (1)
  - DEPRESSION [None]
